FAERS Safety Report 4475231-5 (Version None)
Quarter: 2004Q4

REPORT INFORMATION
  Report Type: 
  Country: None (occurrence: None)
  Receive Date: 20041013
  Receipt Date: 20041013
  Transmission Date: 20050328
  Serious: Yes (Hospitalization)
  Sender: FDA-Public Use
  Company Number: None

PATIENT
  Age: 62 Year
  Sex: Male

DRUGS (13)
  1. METHYLPREDNISOLONE [Suspect]
     Indication: TRANSPLANT REJECTION
     Dates: start: 20040124, end: 20040130
  2. NEORAL [Concomitant]
  3. MYCOPHENOLATE MOFETIL-CELLCEPT [Concomitant]
  4. LEXAPRO [Concomitant]
  5. CLONIDINE HCL [Concomitant]
  6. DILTIAZEM [Concomitant]
  7. INSULINE GLARGINE-LANTUS [Concomitant]
  8. METOPROLOL [Concomitant]
  9. PANTOPRAXOLE [Concomitant]
  10. SODIUM BICARBONATE [Concomitant]
  11. FLONASE [Concomitant]
  12. MULTI-VITAMIN [Concomitant]
  13. COMBIVENT INHL [Concomitant]

REACTIONS (1)
  - HYPERGLYCAEMIA [None]
